FAERS Safety Report 17406984 (Version 1)
Quarter: 2020Q1

REPORT INFORMATION
  Report Type: Spontaneous
  Country: IT (occurrence: IT)
  Receive Date: 20200212
  Receipt Date: 20200212
  Transmission Date: 20200409
  Serious: Yes (Hospitalization)
  Sender: FDA-Public Use
  Company Number: IT-TEVA-2020-IT-1184518

PATIENT
  Age: 2 Year
  Sex: Male

DRUGS (3)
  1. BECLOMETHASONE [Suspect]
     Active Substance: BECLOMETHASONE
     Indication: UPPER RESPIRATORY TRACT INFLAMMATION
     Dosage: 1.5 DOSAGE FORMS
     Route: 055
     Dates: start: 20200116, end: 20200118
  2. CLARITHROMYCIN. [Concomitant]
     Active Substance: CLARITHROMYCIN
  3. BETAMETHASONE. [Suspect]
     Active Substance: BETAMETHASONE
     Indication: UPPER RESPIRATORY TRACT INFLAMMATION
     Route: 048
     Dates: start: 20200116, end: 20200118

REACTIONS (4)
  - Nightmare [Recovered/Resolved]
  - Irritability [Recovered/Resolved]
  - Nocturnal fear [Recovered/Resolved]
  - Middle insomnia [Recovered/Resolved]

NARRATIVE: CASE EVENT DATE: 20200116
